FAERS Safety Report 9399439 (Version 1)
Quarter: 2013Q3

REPORT INFORMATION
  Report Type: Spontaneous
  Country: US (occurrence: None)
  Receive Date: 20130710
  Receipt Date: 20130710
  Transmission Date: 20140515
  Serious: Yes (Hospitalization)
  Sender: FDA-Public Use
  Company Number: SYM-2013-05474

PATIENT
  Age: 20 Year
  Sex: Male

DRUGS (2)
  1. XENAZINE [Suspect]
     Indication: NEURODEGENERATIVE DISORDER
     Route: 048
     Dates: start: 20130624, end: 20130702
  2. UNSPECIFIED INGREDIENTS [Suspect]
     Indication: PRODUCT USED FOR UNKNOWN INDICATION

REACTIONS (2)
  - Pneumonia [None]
  - Drug hypersensitivity [None]
